FAERS Safety Report 6189056-6 (Version None)
Quarter: 2009Q2

REPORT INFORMATION
  Report Type: 
  Country: None (occurrence: None)
  Receive Date: 20090512
  Receipt Date: 20090428
  Transmission Date: 20091009
  Serious: Yes (Other)
  Sender: FDA-Public Use
  Company Number: MPS1-1000172

PATIENT
  Age: 45 Year
  Sex: Female
  Weight: 43 kg

DRUGS (3)
  1. ALDURAZYME [Suspect]
     Indication: MUCOPOLYSACCHARIDOSIS I
     Dosage: 26.1 MG
     Dates: start: 20081003
  2. DOPAMINE HCL [Concomitant]
  3. ALLOPURINOL [Concomitant]

REACTIONS (3)
  - CARDIAC FAILURE [None]
  - ERYTHEMA MULTIFORME [None]
  - PULMONARY FUNCTION TEST DECREASED [None]
